FAERS Safety Report 8977567 (Version 1)
Quarter: 2012Q4

REPORT INFORMATION
  Report Type: 
  Country: IT (occurrence: IT)
  Receive Date: 20121219
  Receipt Date: 20121219
  Transmission Date: 20130627
  Serious: Yes (Other)
  Sender: FDA-Public Use
  Company Number: IT-PFIZER INC-2012319850

PATIENT
  Age: 79 Year
  Sex: Male

DRUGS (2)
  1. CARDURA [Suspect]
     Dosage: 8 mg, 1x/day
     Route: 048
     Dates: start: 20121207, end: 20121207
  2. CARDIOASPIRIN [Concomitant]
     Dosage: 100 mg, UNK
     Route: 048

REACTIONS (4)
  - Loss of consciousness [Unknown]
  - Hypotension [Unknown]
  - Vomiting [Unknown]
  - Blood pressure inadequately controlled [Unknown]
